FAERS Safety Report 8784762 (Version 2)
Quarter: 2013Q1

REPORT INFORMATION
  Report Type: Report from Study
  Country: JP (occurrence: JP)
  Receive Date: 20120914
  Receipt Date: 20130225
  Transmission Date: 20140127
  Serious: Yes (Hospitalization, Other)
  Sender: FDA-Public Use
  Company Number: JP-VERTEX PHARMACEUTICAL INC.-AE-2012-003757

PATIENT
  Age: 66 Year
  Sex: Female

DRUGS (7)
  1. VX-950 (TELAPREVIR) [Suspect]
     Indication: CHRONIC HEPATITIS C
     Dosage: 2250 MG, QD
     Route: 048
     Dates: start: 20120127, end: 20120225
  2. PEGINTERFERON ALFA-2B [Suspect]
     Indication: CHRONIC HEPATITIS C
     Dosage: 1.5 ?G/KG, QW
     Route: 058
     Dates: start: 20120127, end: 20120217
  3. RIBAVIRIN [Suspect]
     Indication: CHRONIC HEPATITIS C
     Dosage: 600 MG, QD
     Route: 048
     Dates: start: 20120127, end: 20120225
  4. LOXONIN [Concomitant]
     Dosage: 180 MG, QD
     Route: 048
     Dates: end: 20120209
  5. ARICEPT [Concomitant]
     Dosage: 1 G, QD
     Route: 048
     Dates: start: 20120207, end: 20120221
  6. MICARDIS [Concomitant]
     Dosage: 40 MG, QD
     Route: 048
     Dates: start: 20120207, end: 20120221
  7. AMLODIN OD [Concomitant]
     Dosage: 2.5 MG, QD
     Route: 048
     Dates: start: 20120207, end: 20120221

REACTIONS (3)
  - Depressive symptom [Recovered/Resolved]
  - Gastritis haemorrhagic [Recovered/Resolved]
  - Anaemia [Recovered/Resolved]
